FAERS Safety Report 9170938 (Version 1)
Quarter: 2013Q1

REPORT INFORMATION
  Report Type: Spontaneous
  Country: US (occurrence: US)
  Receive Date: 20130319
  Receipt Date: 20130319
  Transmission Date: 20140127
  Serious: No
  Sender: FDA-Public Use
  Company Number: US-PFIZER INC-2013088752

PATIENT
  Age: 53 Year
  Sex: Male
  Weight: 90.7 kg

DRUGS (1)
  1. AMLODIPINE BESILATE [Suspect]
     Indication: BLOOD PRESSURE
     Dosage: 5 MG, 1X/DAY

REACTIONS (1)
  - Somnolence [Unknown]
